FAERS Safety Report 23489104 (Version 1)
Quarter: 2024Q1

REPORT INFORMATION
  Report Type: Spontaneous
  Country: US (occurrence: US)
  Receive Date: 20240206
  Receipt Date: 20240206
  Transmission Date: 20240409
  Serious: Yes (Hospitalization, Other)
  Sender: FDA-Public Use
  Company Number: US-FreseniusKabi-FK202401944

PATIENT
  Age: 14 Year
  Sex: Female

DRUGS (15)
  1. DOXORUBICIN [Suspect]
     Active Substance: DOXORUBICIN
     Indication: Osteosarcoma
     Dosage: STANDARD OSTEOSARCOMA CHEMOTHERAPY
  2. DOXORUBICIN [Suspect]
     Active Substance: DOXORUBICIN
     Indication: Metastases to lung
  3. DOXORUBICIN [Suspect]
     Active Substance: DOXORUBICIN
     Indication: Metastases to bone
  4. CISPLATIN [Suspect]
     Active Substance: CISPLATIN
     Indication: Osteosarcoma
     Dosage: STANDARD OSTEOSARCOMA CHEMOTHERAPY
  5. CISPLATIN [Suspect]
     Active Substance: CISPLATIN
     Indication: Metastases to lung
  6. CISPLATIN [Suspect]
     Active Substance: CISPLATIN
     Indication: Metastases to bone
  7. METHOTREXATE [Suspect]
     Active Substance: METHOTREXATE
     Indication: Osteosarcoma
     Dosage: STANDARD OSTEOSARCOMA CHEMOTHERAPY
  8. METHOTREXATE [Suspect]
     Active Substance: METHOTREXATE
     Indication: Metastases to lung
  9. METHOTREXATE [Suspect]
     Active Substance: METHOTREXATE
     Indication: Metastases to bone
  10. IFOSFAMIDE [Suspect]
     Active Substance: IFOSFAMIDE
     Indication: Osteosarcoma
     Dosage: STANDARD OSTEOSARCOMA CHEMOTHERAPY
  11. IFOSFAMIDE [Suspect]
     Active Substance: IFOSFAMIDE
     Indication: Metastases to lung
  12. IFOSFAMIDE [Suspect]
     Active Substance: IFOSFAMIDE
     Indication: Metastases to bone
  13. ETOPOSIDE [Suspect]
     Active Substance: ETOPOSIDE
     Indication: Osteosarcoma
     Dosage: STANDARD OSTEOSARCOMA CHEMOTHERAPY
  14. ETOPOSIDE [Suspect]
     Active Substance: ETOPOSIDE
     Indication: Metastases to lung
  15. ETOPOSIDE [Suspect]
     Active Substance: ETOPOSIDE
     Indication: Metastases to bone

REACTIONS (1)
  - Acute myeloid leukaemia [Unknown]
